FAERS Safety Report 9645008 (Version 2)
Quarter: 2013Q4

REPORT INFORMATION
  Report Type: Spontaneous
  Country: US (occurrence: US)
  Receive Date: 20131025
  Receipt Date: 20131030
  Transmission Date: 20140711
  Serious: Yes (Other)
  Sender: FDA-Public Use
  Company Number: US-PFIZER INC-2013304700

PATIENT
  Sex: Female

DRUGS (4)
  1. EFFEXOR [Suspect]
     Dosage: UNK
  2. PRISTIQ [Suspect]
     Dosage: UNK
  3. LYRICA [Suspect]
     Indication: DIABETIC NEUROPATHY
     Dosage: 100 MG, ONCE A DAY
  4. LYRICA [Suspect]
     Indication: FIBROMYALGIA

REACTIONS (1)
  - Interstitial lung disease [Unknown]
